FAERS Safety Report 7302059-0 (Version None)
Quarter: 2011Q1

REPORT INFORMATION
  Report Type: 
  Country: None (occurrence: None)
  Receive Date: 20110208
  Receipt Date: 20110127
  Transmission Date: 20110831
  Serious: Yes (Hospitalization)
  Sender: FDA-Public Use
  Company Number: 025709

PATIENT
  Age: 23 Year
  Sex: Male

DRUGS (1)
  1. CIMZIA [Suspect]
     Indication: CROHN'S DISEASE
     Dosage: (200 MG 1X/2 WEEKS SUBCUTANEOUS)
     Route: 058

REACTIONS (3)
  - INCORRECT STORAGE OF DRUG [None]
  - DEHYDRATION [None]
  - WHITE BLOOD CELL COUNT INCREASED [None]
